FAERS Safety Report 7906013-7 (Version None)
Quarter: 2011Q4

REPORT INFORMATION
  Report Type: 
  Country: None (occurrence: None)
  Receive Date: 20111109
  Receipt Date: 20111109
  Transmission Date: 20120403
  Serious: Yes (Other)
  Sender: FDA-Public Use
  Company Number: None

PATIENT
  Age: 59 Year
  Sex: Female
  Weight: 58.9676 kg

DRUGS (2)
  1. CIPRO [Suspect]
     Indication: URINARY TRACT INFECTION
     Dosage: 500MG BID P.O.
     Route: 048
     Dates: start: 20111010
  2. CIPRO [Suspect]
     Indication: URINARY TRACT INFECTION
     Dosage: 500MG BID P.O.
     Route: 048
     Dates: start: 20111011

REACTIONS (1)
  - COMPLEX PARTIAL SEIZURES [None]
